FAERS Safety Report 8508212-2 (Version None)
Quarter: 2012Q3

REPORT INFORMATION
  Report Type: 
  Country: None (occurrence: None)
  Receive Date: 20120713
  Receipt Date: 20120703
  Transmission Date: 20120928
  Serious: Yes (Hospitalization, Disabling, Other)
  Sender: FDA-Public Use
  Company Number: US-009507513-1111USA00986

PATIENT

DRUGS (14)
  1. FOSAMAX [Suspect]
     Indication: OSTEOPOROSIS
     Dosage: 2 MG, QD
     Route: 048
  2. FOSAMAX [Suspect]
     Dosage: 70 MG, UNK
     Route: 048
     Dates: start: 20080813, end: 20101101
  3. METICORTEN [Suspect]
     Route: 048
     Dates: start: 20030101
  4. CYTOXAN [Concomitant]
  5. CLARINEX [Concomitant]
     Dosage: 5 MG, QD
  6. ASPIRIN [Concomitant]
     Dosage: 81 MG, UNK
  7. OS-CAL (CALCIUM CARBONATE) [Concomitant]
  8. FOSAMAX [Suspect]
     Indication: OSTEOPENIA
     Dosage: 70 MG, QW
     Route: 048
     Dates: start: 20050211, end: 20080701
  9. NORVASC [Concomitant]
     Dosage: 5 MG, UNK
  10. LIPITOR [Concomitant]
     Dosage: UNK MG, HS
  11. VITAMIN D (UNSPECIFIED) [Concomitant]
  12. AXID [Concomitant]
     Dosage: 150 MG, UNK
  13. ACTONEL [Suspect]
     Route: 048
  14. ESTRACE [Concomitant]
     Dosage: 2 MG, QD
     Route: 067

REACTIONS (59)
  - LOW TURNOVER OSTEOPATHY [None]
  - HYPOPARATHYROIDISM [None]
  - CARDIAC DISORDER [None]
  - UPPER RESPIRATORY TRACT INFECTION [None]
  - TENOSYNOVITIS [None]
  - CHEST PAIN [None]
  - DEVICE FAILURE [None]
  - VISUAL IMPAIRMENT [None]
  - ADVERSE DRUG REACTION [None]
  - SJOGREN'S SYNDROME [None]
  - IMPAIRED HEALING [None]
  - BURSITIS [None]
  - DYSPNOEA [None]
  - ARTHROPATHY [None]
  - CUTANEOUS VASCULITIS [None]
  - HAEMORRHAGIC DISORDER [None]
  - HAEMATURIA [None]
  - BRONCHITIS [None]
  - INFECTION [None]
  - APPENDICITIS [None]
  - URINARY TRACT INFECTION [None]
  - BLISTER [None]
  - NIGHT SWEATS [None]
  - INTERSTITIAL LUNG DISEASE [None]
  - SINUSITIS [None]
  - SINUS TACHYCARDIA [None]
  - AUTOIMMUNE DISORDER [None]
  - TRIGGER FINGER [None]
  - FRACTURE NONUNION [None]
  - PAIN IN EXTREMITY [None]
  - ILEUS [None]
  - FALL [None]
  - FEMUR FRACTURE [None]
  - ABDOMINAL PAIN [None]
  - VISION BLURRED [None]
  - PNEUMONIA [None]
  - PYELONEPHRITIS [None]
  - PETECHIAE [None]
  - ARTHROPOD BITE [None]
  - LEUKOCYTOCLASTIC VASCULITIS [None]
  - NEPHROLITHIASIS [None]
  - RASH [None]
  - PLEURAL EFFUSION [None]
  - CHOLELITHIASIS [None]
  - MYOCARDIAL ISCHAEMIA [None]
  - ANGINA PECTORIS [None]
  - PYODERMA [None]
  - HYPOTHYROIDISM [None]
  - LEFT VENTRICULAR END-DIASTOLIC PRESSURE INCREASED [None]
  - ARTHRALGIA [None]
  - DERMATITIS CONTACT [None]
  - CELLULITIS [None]
  - CONJUNCTIVITIS [None]
  - SKIN LESION [None]
  - OEDEMA [None]
  - HYPERTHYROIDISM [None]
  - BASEDOW'S DISEASE [None]
  - SKIN GRAFT FAILURE [None]
  - BLOOD ALKALINE PHOSPHATASE INCREASED [None]
